FAERS Safety Report 9344426 (Version 3)
Quarter: 2013Q4

REPORT INFORMATION
  Report Type: Spontaneous
  Country: US (occurrence: US)
  Receive Date: 20130612
  Receipt Date: 20131101
  Transmission Date: 20140711
  Serious: No
  Sender: FDA-Public Use
  Company Number: US-009507513-1306USA001674

PATIENT
  Sex: Male

DRUGS (7)
  1. PEG-INTRON [Suspect]
     Indication: HEPATITIS C
     Dosage: REDIPEN
     Dates: start: 20130519
  2. PEG-INTRON [Suspect]
     Dosage: REDIPEN
     Dates: start: 20120101, end: 20120110
  3. PEG-INTRON [Suspect]
     Dosage: REDIPEN
     Dates: start: 201201, end: 201210
  4. REBETOL [Suspect]
     Indication: HEPATITIS C
     Dosage: UNK
     Route: 048
     Dates: start: 20130519
  5. REBETOL [Suspect]
     Dosage: UNK
     Route: 048
     Dates: start: 201201, end: 201210
  6. REBETOL [Suspect]
     Dosage: UNK
     Route: 048
     Dates: start: 20120101, end: 20120110
  7. VICTRELIS [Suspect]
     Indication: HEPATITIS C
     Dosage: UNK
     Route: 048
     Dates: start: 20130619

REACTIONS (7)
  - Back pain [Unknown]
  - Rash generalised [Unknown]
  - Hepatitis C [Unknown]
  - Fatigue [Unknown]
  - Fatigue [Unknown]
  - Nausea [Unknown]
  - Fatigue [Unknown]
